FAERS Safety Report 24011473 (Version 1)
Quarter: 2024Q2

REPORT INFORMATION
  Report Type: Report from Study
  Country: DE (occurrence: DE)
  Receive Date: 20240625
  Receipt Date: 20240625
  Transmission Date: 20240716
  Serious: Yes (Other)
  Sender: FDA-Public Use
  Company Number: DE-JNJFOC-20230412132

PATIENT
  Age: 17 Year
  Sex: Female

DRUGS (3)
  1. REMICADE [Suspect]
     Active Substance: INFLIXIMAB
     Indication: Crohn^s disease
     Route: 041
     Dates: start: 20100617, end: 20110825
  2. REMICADE [Suspect]
     Active Substance: INFLIXIMAB
     Route: 041
     Dates: start: 20090702, end: 20100318
  3. REMICADE [Suspect]
     Active Substance: INFLIXIMAB
     Route: 041
     Dates: start: 20100415, end: 20100517

REACTIONS (11)
  - Haematochezia [Recovered/Resolved]
  - Immunodeficiency [Not Recovered/Not Resolved]
  - Rectal stenosis [Not Recovered/Not Resolved]
  - Acne [Recovered/Resolved]
  - Cough [Recovered/Resolved]
  - Dermatosis [Recovered/Resolved]
  - Dysmenorrhoea [Recovered/Resolved]
  - Gastritis [Recovered/Resolved]
  - Iron deficiency [Recovered/Resolved]
  - Granuloma [Not Recovered/Not Resolved]
  - Abdominal pain upper [Recovered/Resolved]
